FAERS Safety Report 5358647-4 (Version None)
Quarter: 2007Q2

REPORT INFORMATION
  Report Type: 
  Country: None (occurrence: None)
  Receive Date: 20070601
  Receipt Date: 20070213
  Transmission Date: 20071010
  Serious: No
  Sender: FDA-Public Use
  Company Number: PHEH2007US01976

PATIENT
  Age: 61 Year
  Sex: Female

DRUGS (1)
  1. ENABLEX [Suspect]

REACTIONS (2)
  - DECREASED APPETITE [None]
  - HEADACHE [None]
